FAERS Safety Report 4281791-X (Version None)
Quarter: 2004Q1

REPORT INFORMATION
  Report Type: 
  Country: None (occurrence: None)
  Receive Date: 20040128
  Receipt Date: 20040120
  Transmission Date: 20041129
  Serious: Yes (Hospitalization, Other)
  Sender: FDA-Public Use
  Company Number: HQWYE482820JAN04

PATIENT
  Age: 22 Year
  Sex: Male

DRUGS (3)
  1. OROKEN (CEFIXIME, TABLET) [Suspect]
     Indication: ANAL ABSCESS
     Dosage: 400 MG DAILY
     Route: 048
     Dates: start: 20030920, end: 20031006
  2. FLAGYL [Suspect]
     Indication: ANAL ABSCESS
     Dosage: 1 GR DAILY
     Route: 048
     Dates: start: 20030919, end: 20031006
  3. OFLOCET (OFLOXACIN, ) [Suspect]
     Indication: ANAL ABSCESS
     Dosage: 400 MG DAILY
     Route: 048
     Dates: start: 20030919, end: 20030920

REACTIONS (1)
  - TENDONITIS [None]
